FAERS Safety Report 4627969-4 (Version None)
Quarter: 2005Q2

REPORT INFORMATION
  Report Type: 
  Country: None (occurrence: None)
  Receive Date: 20050404
  Receipt Date: 20050404
  Transmission Date: 20051028
  Serious: Yes (Other)
  Sender: FDA-Public Use
  Company Number: None

PATIENT
  Sex: Male
  Weight: 88.4514 kg

DRUGS (1)
  1. COLD-EEZE 1X 1.36% W/V ZINC GLUCONATE THE QUIGLEY CORPORATION [Suspect]
     Indication: NASOPHARYNGITIS
     Dosage: 1 STREAM 2X ONLY NASAL
     Route: 045
     Dates: start: 20050322, end: 20050322

REACTIONS (2)
  - ANOSMIA [None]
  - APPLICATION SITE IRRITATION [None]
